FAERS Safety Report 4465544-5 (Version None)
Quarter: 2004Q4

REPORT INFORMATION
  Report Type: 
  Country: None (occurrence: None)
  Receive Date: 20041004
  Receipt Date: 20040524
  Transmission Date: 20050328
  Serious: Yes (Hospitalization)
  Sender: FDA-Public Use
  Company Number: US-GLAXOSMITHKLINE-A0512346A

PATIENT
  Age: 48 Year
  Sex: Female
  Weight: 64.1 kg

DRUGS (5)
  1. IMITREX [Suspect]
     Indication: MIGRAINE
     Route: 045
     Dates: end: 20010914
  2. NASONEX [Concomitant]
     Route: 045
  3. PREMARIN [Concomitant]
  4. TOPROL-XL [Concomitant]
     Dosage: 25MG PER DAY
  5. ASPIRIN [Concomitant]

REACTIONS (8)
  - ARTERIOSPASM CORONARY [None]
  - CHEST PAIN [None]
  - DIZZINESS [None]
  - DYSPNOEA [None]
  - EXERCISE TOLERANCE DECREASED [None]
  - FATIGUE [None]
  - MYOCARDIAL INFARCTION [None]
  - PALPITATIONS [None]
